FAERS Safety Report 10774552 (Version 5)
Quarter: 2015Q2

REPORT INFORMATION
  Report Type: Spontaneous
  Country: US (occurrence: None)
  Receive Date: 20150126
  Receipt Date: 20150609
  Transmission Date: 20150821
  Serious: Yes (Other)
  Sender: FDA-Public Use
  Company Number: BTG00199

PATIENT
  Sex: Female

DRUGS (20)
  1. CRESTOR [Concomitant]
     Active Substance: ROSUVASTATIN CALCIUM
  2. LEVEMIR [Concomitant]
     Active Substance: INSULIN DETEMIR
  3. DIGIFAB [Suspect]
     Active Substance: OVINE DIGOXIN IMMUNE FAB
     Indication: TOXICITY TO VARIOUS AGENTS
     Dosage: 100 MG, SINGLE
     Route: 051
     Dates: start: 20150113
  4. ASPIRIN. [Concomitant]
     Active Substance: ASPIRIN
  5. FOSAMAX [Concomitant]
     Active Substance: ALENDRONATE SODIUM
  6. CHOLECALCIFEROL (CHOLECALCIFEROL) [Concomitant]
  7. CARDIZEM (DILTIAZEM HYDROCHLORIDE) [Concomitant]
  8. LOSARTAN (LOSARTAN POTASSIUM) [Concomitant]
  9. METOCLOPRAMIDE (METOCLOPRAMIDE HYDROCHLORIDE) [Concomitant]
  10. SEVELAMER (SEVELAMER) [Concomitant]
  11. SYNTHROID [Concomitant]
     Active Substance: LEVOTHYROXINE SODIUM
  12. DIGOXIN (BETA-ACETYLDIGOXIN) [Suspect]
     Active Substance: .BETA.-ACETYLDIGOXIN
     Indication: PRODUCT USED FOR UNKNOWN INDICATION
  13. INSULIN (INSULIN PORCINE) [Concomitant]
     Active Substance: INSULIN PORK\INSULIN PURIFIED PORK
  14. LASIX [Concomitant]
     Active Substance: FUROSEMIDE
  15. METFORMIN [Concomitant]
     Active Substance: METFORMIN HYDROCHLORIDE
  16. METOPROLOL (METOPROLOL TARTRATE) [Concomitant]
     Active Substance: METOPROLOL TARTRATE
  17. SENSIPAR (CINACALCET HYDROCHLORIDE) [Concomitant]
  18. AMARYL [Concomitant]
     Active Substance: GLIMEPIRIDE
  19. VESICARE [Concomitant]
     Active Substance: SOLIFENACIN SUCCINATE
  20. WARFARIN (WARFARIN SODIUM) [Concomitant]

REACTIONS (8)
  - Toxicity to various agents [None]
  - Laboratory test interference [None]
  - Wrist fracture [None]
  - Anticoagulation drug level below therapeutic [None]
  - Atrial fibrillation [None]
  - Drug ineffective [None]
  - Haemodialysis [None]
  - Vertigo [None]
